FAERS Safety Report 6273950-1 (Version None)
Quarter: 2009Q3

REPORT INFORMATION
  Report Type: 
  Country: None (occurrence: None)
  Receive Date: 20090720
  Receipt Date: 20090625
  Transmission Date: 20100115
  Serious: Yes (Hospitalization)
  Sender: FDA-Public Use
  Company Number: US-MERCK-0808USA01148

PATIENT
  Age: 65 Year
  Sex: Female

DRUGS (9)
  1. JANUVIA [Suspect]
     Indication: DIABETES MELLITUS
     Route: 048
     Dates: start: 20080702, end: 20080727
  2. PRAVASTATIN SODIUM [Concomitant]
     Route: 065
  3. OMEPRAZOLE [Suspect]
     Indication: ABDOMINAL PAIN UPPER
     Route: 065
     Dates: start: 20080702, end: 20080726
  4. AMARYL [Concomitant]
     Indication: DIABETES MELLITUS
     Route: 065
  5. METFORMIN [Concomitant]
     Indication: DIABETES MELLITUS
     Route: 065
  6. LASIX [Concomitant]
     Route: 065
  7. DARVOCET-N 100 [Concomitant]
     Route: 065
  8. PRAVACHOL [Concomitant]
     Route: 065
  9. LISINOPRIL [Concomitant]
     Route: 065

REACTIONS (1)
  - PANCREATITIS [None]
